FAERS Safety Report 4323457-3 (Version None)
Quarter: 2004Q1

REPORT INFORMATION
  Report Type: 
  Country: None (occurrence: None)
  Receive Date: 20040325
  Receipt Date: 20040317
  Transmission Date: 20041129
  Serious: Yes (Hospitalization)
  Sender: FDA-Public Use
  Company Number: FR-ROCHE-361931

PATIENT
  Age: 68 Year
  Sex: Male

DRUGS (7)
  1. VALIUM [Suspect]
     Indication: DRUG USE FOR UNKNOWN INDICATION
     Route: 065
  2. BACTRIM FORTE IM ROCHE [Suspect]
     Route: 048
     Dates: start: 20040202, end: 20040213
  3. ZOXAN [Suspect]
     Route: 048
     Dates: start: 20040202, end: 20040213
  4. BISOPROLOL FUMARATE [Concomitant]
  5. SERESTA [Concomitant]
  6. MEDIATENSYL [Concomitant]
  7. SPIRONOLACTONE [Concomitant]

REACTIONS (2)
  - BICYTOPENIA [None]
  - STEVENS-JOHNSON SYNDROME [None]
